FAERS Safety Report 22095157 (Version 2)
Quarter: 2024Q1

REPORT INFORMATION
  Report Type: Spontaneous
  Country: US (occurrence: US)
  Receive Date: 20230314
  Receipt Date: 20240221
  Transmission Date: 20240410
  Serious: No
  Sender: FDA-Public Use
  Company Number: US-ELI_LILLY_AND_COMPANY-US202303000472

PATIENT
  Age: 51 Year
  Sex: Female

DRUGS (11)
  1. INSULIN LISPRO [Suspect]
     Active Substance: INSULIN LISPRO
     Indication: Diabetes mellitus
     Dosage: UNK UNK, PRN (SLIDING SCALE)
     Route: 058
  2. INSULIN LISPRO [Suspect]
     Active Substance: INSULIN LISPRO
     Indication: Diabetes mellitus
     Dosage: UNK UNK, PRN (SLIDING SCALE)
     Route: 058
  3. INSULIN LISPRO [Suspect]
     Active Substance: INSULIN LISPRO
     Dosage: UNK UNK, PRN (SLIDING SCALE)
     Route: 058
  4. INSULIN LISPRO [Suspect]
     Active Substance: INSULIN LISPRO
     Dosage: UNK UNK, PRN (SLIDING SCALE)
     Route: 058
  5. HUMALOG [Suspect]
     Active Substance: INSULIN LISPRO
     Indication: Diabetes mellitus
     Dosage: UNK UNK, PRN (SLIDING SCALE)
     Route: 058
     Dates: start: 202210
  6. MOUNJARO [Suspect]
     Active Substance: TIRZEPATIDE
     Indication: Diabetes mellitus
     Dosage: 5 MG, UNKNOWN
     Route: 058
     Dates: start: 202301
  7. MOUNJARO [Suspect]
     Active Substance: TIRZEPATIDE
     Indication: Diabetes mellitus
     Dosage: 5 MG, UNKNOWN
     Route: 058
     Dates: start: 202301
  8. MOUNJARO [Suspect]
     Active Substance: TIRZEPATIDE
     Indication: Diabetes mellitus
     Dosage: 5 MG, UNKNOWN
     Route: 058
     Dates: start: 202301
  9. MOUNJARO [Suspect]
     Active Substance: TIRZEPATIDE
     Indication: Diabetes mellitus
     Dosage: 5 MG, UNKNOWN
     Route: 058
     Dates: start: 202301
  10. MOUNJARO [Suspect]
     Active Substance: TIRZEPATIDE
     Indication: Diabetes mellitus
     Dosage: 5 MG, UNKNOWN
     Route: 058
     Dates: start: 202301
  11. TOUJEO [Concomitant]
     Active Substance: INSULIN GLARGINE
     Indication: Diabetes mellitus
     Dosage: UNK UNK, UNKNOWN
     Route: 065

REACTIONS (7)
  - Cataract [Unknown]
  - Weight increased [Unknown]
  - Blood glucose increased [Unknown]
  - Product dispensing error [Unknown]
  - Inappropriate schedule of product administration [Unknown]
  - Incorrect dose administered [Unknown]
  - Blood glucose decreased [Unknown]
